FAERS Safety Report 8462466-X (Version None)
Quarter: 2012Q2

REPORT INFORMATION
  Report Type: 
  Country: None (occurrence: None)
  Receive Date: 20120625
  Receipt Date: 20120619
  Transmission Date: 20120825
  Serious: Yes (Death, Hospitalization)
  Sender: FDA-Public Use
  Company Number: IT-ELI_LILLY_AND_COMPANY-IT201206005949

PATIENT

DRUGS (2)
  1. ALIMTA [Suspect]
     Indication: LUNG ADENOCARCINOMA
     Dosage: 800 MG, UNK
     Route: 042
     Dates: start: 20120416, end: 20120507
  2. CARBOPLATIN [Concomitant]
     Dosage: 380 MG, UNK
     Route: 042
     Dates: start: 20120416, end: 20120507

REACTIONS (6)
  - VOMITING [None]
  - FEBRILE NEUTROPENIA [None]
  - DIARRHOEA [None]
  - RENAL FAILURE ACUTE [None]
  - MUCOSAL INFLAMMATION [None]
  - DEHYDRATION [None]
